FAERS Safety Report 10978545 (Version 1)
Quarter: 2015Q2

REPORT INFORMATION
  Report Type: Spontaneous
  Country: PL (occurrence: PL)
  Receive Date: 20150402
  Receipt Date: 20150402
  Transmission Date: 20150821
  Serious: Yes (Other)
  Sender: FDA-Public Use
  Company Number: PHHY2015PL036309

PATIENT
  Age: 54 Year
  Sex: Male

DRUGS (1)
  1. SIMVASTATIN. [Suspect]
     Active Substance: SIMVASTATIN
     Indication: ARTERIOSCLEROSIS
     Route: 065

REACTIONS (4)
  - Cognitive disorder [Unknown]
  - Amnesia [Unknown]
  - Nervousness [Unknown]
  - Insomnia [Unknown]
